FAERS Safety Report 4679867-8 (Version None)
Quarter: 2005Q2

REPORT INFORMATION
  Report Type: 
  Country: None (occurrence: None)
  Receive Date: 20050602
  Receipt Date: 20041029
  Transmission Date: 20051028
  Serious: No
  Sender: FDA-Public Use
  Company Number: EGEL00204003672

PATIENT
  Sex: Female

DRUGS (2)
  1. AUGMENTIN [Suspect]
     Indication: ILL-DEFINED DISORDER
  2. ESTROGEL [Suspect]
     Indication: ILL-DEFINED DISORDER

REACTIONS (1)
  - SKIN IRRITATION [None]
